FAERS Safety Report 9671740 (Version 2)
Quarter: 2014Q1

REPORT INFORMATION
  Report Type: Spontaneous
  Country: JP (occurrence: JP)
  Receive Date: 20131106
  Receipt Date: 20140103
  Transmission Date: 20141002
  Serious: Yes (Other)
  Sender: FDA-Public Use
  Company Number: JP-OTSUKA-JP-2013-14999

PATIENT
  Sex: Male

DRUGS (4)
  1. SAMSCA [Suspect]
     Indication: OEDEMA DUE TO CARDIAC DISEASE
     Dosage: 15 MG MILLIGRAM(S), DAILY DOSE
     Route: 048
  2. DAIKENTYUTO [Suspect]
     Route: 048
  3. GASMOTIN [Suspect]
     Dosage: 15 MG MILLIGRAM(S), DAILY DOSE
     Route: 048
  4. PANTOSIN [Suspect]
     Dosage: 180 MG MILLIGRAM(S), DAILY DOSE
     Route: 048

REACTIONS (1)
  - Drug interaction [Unknown]
